FAERS Safety Report 5546103-X (Version None)
Quarter: 2007Q4

REPORT INFORMATION
  Report Type: 
  Country: None (occurrence: None)
  Receive Date: 20071211
  Receipt Date: 20071012
  Transmission Date: 20080405
  Serious: No
  Sender: FDA-Public Use
  Company Number: US-BRISTOL-MYERS SQUIBB COMPANY-13940622

PATIENT
  Age: 61 Year
  Sex: Female
  Weight: 50 kg

DRUGS (3)
  1. EMSAM [Suspect]
     Indication: DEPRESSION
     Dosage: INITIAL DOSE: 8MG,INCREASED TO 10 MG 2WKS LATER.AFTER 1-2 WKS DECREASED BACK TO 8MG.
     Dates: start: 20070601
  2. CALCIUM [Concomitant]
  3. DEPLIN [Concomitant]

REACTIONS (5)
  - BLOOD PRESSURE DECREASED [None]
  - BLOOD THYROID STIMULATING HORMONE INCREASED [None]
  - DIZZINESS [None]
  - HEART RATE INCREASED [None]
  - PALPITATIONS [None]
